FAERS Safety Report 4570635-4 (Version None)
Quarter: 2005Q1

REPORT INFORMATION
  Report Type: 
  Country: None (occurrence: None)
  Receive Date: 20050202
  Receipt Date: 20050118
  Transmission Date: 20050727
  Serious: Yes (Other)
  Sender: FDA-Public Use
  Company Number: EWC041241802

PATIENT
  Age: 41 Year
  Sex: Female
  Weight: 64 kg

DRUGS (5)
  1. HUMULIN-HUMAN INSULIN [Suspect]
     Dates: start: 19940101, end: 19940101
  2. ACTRAPID (INSULIN) [Concomitant]
  3. PROTOPHANE (INSULIN HUMAN) [Concomitant]
  4. SIMVASTATIN [Concomitant]
  5. THYROXINE                      (LEVOTHYROXINE SODIUM) [Concomitant]

REACTIONS (1)
  - ANAPHYLACTIC REACTION [None]
